FAERS Safety Report 24223123 (Version 1)
Quarter: 2024Q3

REPORT INFORMATION
  Report Type: Spontaneous
  Country: CN (occurrence: CN)
  Receive Date: 20240819
  Receipt Date: 20240819
  Transmission Date: 20241017
  Serious: Yes (Hospitalization)
  Sender: PFIZER
  Company Number: CN-PFIZER INC-PV202400106138

PATIENT
  Age: 70 Year
  Sex: Female
  Weight: 34 kg

DRUGS (5)
  1. ZYVOX [Interacting]
     Active Substance: LINEZOLID
     Indication: Bronchiectasis
     Dosage: 0.6 G, 2X/DAY
     Route: 048
     Dates: start: 20240618, end: 20240620
  2. ZYVOX [Interacting]
     Active Substance: LINEZOLID
     Indication: Infection
  3. ZYVOX [Interacting]
     Active Substance: LINEZOLID
     Indication: Mycobacterium avium complex infection
  4. FLUPENTIXOL\MELITRACEN [Interacting]
     Active Substance: FLUPENTIXOL\MELITRACEN
     Indication: Bronchiectasis
     Dosage: 1 TABLET, 1X/DAY
     Dates: start: 20240614, end: 20240620
  5. FLUPENTIXOL\MELITRACEN [Interacting]
     Active Substance: FLUPENTIXOL\MELITRACEN
     Indication: Infection

REACTIONS (3)
  - Drug interaction [Unknown]
  - Serotonin syndrome [Recovering/Resolving]
  - Off label use [Unknown]

NARRATIVE: CASE EVENT DATE: 20240618
